FAERS Safety Report 7246267-6 (Version None)
Quarter: 2011Q1

REPORT INFORMATION
  Report Type: 
  Country: None (occurrence: None)
  Receive Date: 20110126
  Receipt Date: 20110120
  Transmission Date: 20110831
  Serious: Yes (Hospitalization)
  Sender: FDA-Public Use
  Company Number: US-ELI_LILLY_AND_COMPANY-US201010004777

PATIENT
  Sex: Male
  Weight: 34.3 kg

DRUGS (22)
  1. CREON [Concomitant]
  2. ZYRTEC [Concomitant]
  3. TIGECYCLINE [Concomitant]
  4. ADVAIR [Concomitant]
  5. FLONASE [Concomitant]
  6. BACTRIM [Concomitant]
  7. PREDNISONE [Concomitant]
  8. TOBRAMYCIN [Concomitant]
  9. ZOFRAN [Concomitant]
  10. SINGULAIR [Concomitant]
  11. HUMATROPE [Suspect]
     Indication: GROWTH RETARDATION
     Dosage: 1.1 MG, EACH EVENING
     Route: 058
     Dates: start: 20100601
  12. ZITHROMAX [Concomitant]
  13. PANCRELIPASE [Concomitant]
  14. CEFEPIME [Concomitant]
  15. MIRTAZAPINE [Concomitant]
  16. ASPIRIN [Concomitant]
  17. PANTOPRAZOLE [Concomitant]
  18. PHENERGAN [Concomitant]
  19. MARINOL [Concomitant]
  20. ITRACONAZOLE [Concomitant]
  21. FLUTICASONE PROPIONATE [Concomitant]
  22. MULTI-VITAMIN [Concomitant]

REACTIONS (2)
  - INFECTIVE PULMONARY EXACERBATION OF CYSTIC FIBROSIS [None]
  - HYPERGLYCAEMIA [None]
